FAERS Safety Report 5583802-8 (Version None)
Quarter: 2008Q1

REPORT INFORMATION
  Report Type: 
  Country: None (occurrence: None)
  Receive Date: 20080103
  Receipt Date: 20080103
  Transmission Date: 20080703
  Serious: Yes (Hospitalization)
  Sender: FDA-Public Use
  Company Number: None

PATIENT
  Age: 88 Year
  Sex: Male

DRUGS (4)
  1. SPIRONOLACTONE [Suspect]
     Indication: DIURETIC THERAPY
  2. LISINOPRIL [Suspect]
     Indication: HYPERTENSION
  3. POTASSIUM [Suspect]
     Indication: ELECTROLYTE SUBSTITUTION THERAPY
  4. FUROSEMIDE [Suspect]
     Indication: HYPERTENSION

REACTIONS (3)
  - ASTHENIA [None]
  - BLOOD CREATININE INCREASED [None]
  - HYPERKALAEMIA [None]
